FAERS Safety Report 12834959 (Version 2)
Quarter: 2016Q4

REPORT INFORMATION
  Report Type: Report from Study
  Country: US (occurrence: US)
  Receive Date: 20161010
  Receipt Date: 20161017
  Transmission Date: 20170207
  Serious: Yes (Hospitalization, Other)
  Sender: FDA-Public Use
  Company Number: US-GILEAD-2016-0210643

PATIENT
  Age: 68 Year
  Sex: Male

DRUGS (4)
  1. NORVASC [Concomitant]
     Active Substance: AMLODIPINE BESYLATE
     Dosage: UNK
  2. FENTANYL                           /00174602/ [Suspect]
     Active Substance: FENTANYL
     Indication: PRODUCT USED FOR UNKNOWN INDICATION
     Route: 065
  3. HYDROCHLOROTHIAZIDE. [Concomitant]
     Active Substance: HYDROCHLOROTHIAZIDE
     Dosage: UNK
  4. IDELALISIB [Suspect]
     Active Substance: IDELALISIB
     Indication: B-CELL LYMPHOMA
     Dosage: 150 MG, BID
     Route: 048
     Dates: start: 20160317

REACTIONS (31)
  - Blood pressure increased [Unknown]
  - Contusion [Recovered/Resolved]
  - Scratch [Unknown]
  - Back pain [Not Recovered/Not Resolved]
  - Abdominal pain upper [Recovered/Resolved]
  - Drug dose omission [Recovered/Resolved]
  - Laceration [Unknown]
  - Dyspnoea exertional [Unknown]
  - Pain [Not Recovered/Not Resolved]
  - Dyschezia [Recovering/Resolving]
  - Loss of consciousness [Recovered/Resolved]
  - Visual acuity reduced [Not Recovered/Not Resolved]
  - Diarrhoea [Unknown]
  - Antipsychotic drug level increased [Unknown]
  - Abnormal faeces [Not Recovered/Not Resolved]
  - Haemorrhage [Not Recovered/Not Resolved]
  - Diarrhoea [Unknown]
  - Fatigue [Not Recovered/Not Resolved]
  - Essential tremor [Unknown]
  - Chills [Not Recovered/Not Resolved]
  - Diarrhoea [Recovered/Resolved]
  - Hepatic enzyme increased [Recovered/Resolved]
  - Frequent bowel movements [Recovered/Resolved]
  - Neck mass [Unknown]
  - Cold sweat [Unknown]
  - Dyspnoea [Recovering/Resolving]
  - Rash [Unknown]
  - Hyperhidrosis [Not Recovered/Not Resolved]
  - Increased tendency to bruise [Not Recovered/Not Resolved]
  - Pain [Unknown]
  - Fatigue [Recovering/Resolving]

NARRATIVE: CASE EVENT DATE: 20160327
